FAERS Safety Report 12077660 (Version 1)
Quarter: 2016Q1

REPORT INFORMATION
  Report Type: Spontaneous
  Country: US (occurrence: US)
  Receive Date: 20160215
  Receipt Date: 20160215
  Transmission Date: 20160526
  Serious: No
  Sender: FDA-Public Use
  Company Number: GXBR2015US002252

PATIENT
  Age: 58 Year
  Sex: Male

DRUGS (2)
  1. ANTIHYPERTENSIVES [Concomitant]
     Active Substance: UNSPECIFIED INGREDIENT
     Indication: HYPERTENSION
  2. ZINC OXIDE. [Suspect]
     Active Substance: ZINC OXIDE
     Indication: SCRATCH
     Dosage: UNK DF, QHS
     Route: 061
     Dates: start: 20151003

REACTIONS (2)
  - Expired product administered [Not Recovered/Not Resolved]
  - Drug ineffective [Not Recovered/Not Resolved]

NARRATIVE: CASE EVENT DATE: 20151003
